FAERS Safety Report 17641051 (Version 1)
Quarter: 2020Q2

REPORT INFORMATION
  Report Type: Spontaneous
  Country: US (occurrence: US)
  Receive Date: 20200408
  Receipt Date: 20200408
  Transmission Date: 20200713
  Serious: No
  Sender: FDA-Public Use
  Company Number: US-009507513-2004USA001845

PATIENT
  Age: 32 Year
  Sex: Female
  Weight: 62.6 kg

DRUGS (2)
  1. NEXPLANON [Suspect]
     Active Substance: ETONOGESTREL
     Indication: CONTRACEPTION
     Dosage: 1 IMPLANT EVERY 3 YEARS, INSERTED IN ARM
     Route: 059
     Dates: start: 20200116, end: 20200403
  2. NEXPLANON [Suspect]
     Active Substance: ETONOGESTREL
     Dosage: 1 IMPLANT, RIGHT ARM
     Route: 059
     Dates: start: 20200403

REACTIONS (7)
  - Device kink [Recovered/Resolved]
  - Complication of device removal [Recovered/Resolved]
  - Implant site bruising [Recovered/Resolved]
  - Haematoma [Recovering/Resolving]
  - Fibrosis [Recovering/Resolving]
  - Product administered at inappropriate site [Unknown]
  - Implant site bruising [Recovering/Resolving]

NARRATIVE: CASE EVENT DATE: 20200116
